APPROVED DRUG PRODUCT: MUCOSIL-20
Active Ingredient: ACETYLCYSTEINE
Strength: 20%
Dosage Form/Route: SOLUTION;INHALATION, ORAL
Application: A070576 | Product #001
Applicant: DEY LP
Approved: Oct 14, 1986 | RLD: No | RS: No | Type: DISCN